FAERS Safety Report 8087882-X (Version None)
Quarter: 2012Q1

REPORT INFORMATION
  Report Type: 
  Country: None (occurrence: None)
  Receive Date: 20120128
  Receipt Date: 20110408
  Transmission Date: 20120608
  Serious: No
  Sender: FDA-Public Use
  Company Number: US-ABBOTT-11P-163-0718091-00

PATIENT
  Sex: Male
  Weight: 89.892 kg

DRUGS (3)
  1. HUMIRA [Suspect]
     Dates: start: 20110201
  2. HUMIRA [Suspect]
     Indication: PSORIASIS
     Dates: start: 20070101, end: 20110201
  3. UNKNOWN BLOOD PRESSURE MEDICATION [Concomitant]
     Indication: HYPERTENSION

REACTIONS (2)
  - PSORIASIS [None]
  - HEPATIC ENZYME INCREASED [None]
